FAERS Safety Report 5195014-0 (Version None)
Quarter: 2006Q4

REPORT INFORMATION
  Report Type: 
  Country: None (occurrence: None)
  Receive Date: 20061229
  Receipt Date: 20061109
  Transmission Date: 20070319
  Serious: Yes (Other)
  Sender: FDA-Public Use
  Company Number: DE-PURDUE-DEU_2006_0002640

PATIENT
  Age: 80 Year
  Sex: Female

DRUGS (3)
  1. OXYCODONE HCL/NALOXONE HCL CR TAB 10/5MG [Suspect]
     Indication: PAIN
     Dosage: 10 MG, BID
     Route: 048
     Dates: start: 20061030, end: 20061108
  2. METAMIZOLE [Concomitant]
     Dates: start: 20061030
  3. TETRAZEPAM [Concomitant]
     Dates: start: 20061030, end: 20061109

REACTIONS (1)
  - PANIC ATTACK [None]
